FAERS Safety Report 24619055 (Version 1)
Quarter: 2024Q4

REPORT INFORMATION
  Report Type: Spontaneous
  Country: US (occurrence: US)
  Receive Date: 20241114
  Receipt Date: 20241114
  Transmission Date: 20250115
  Serious: No
  Sender: CIPLA
  Company Number: US-CIPLA LTD.-2024US03402

PATIENT

DRUGS (1)
  1. GABAPENTIN [Suspect]
     Active Substance: GABAPENTIN
     Indication: Product used for unknown indication
     Dosage: 1 CAPSULE IN THE MORNING AND 2 CAPSULES AT BEDTIME (BID)
     Route: 065

REACTIONS (3)
  - Abdominal discomfort [Unknown]
  - Product odour abnormal [Unknown]
  - Product quality issue [Unknown]
